FAERS Safety Report 6007452-4 (Version None)
Quarter: 2008Q4

REPORT INFORMATION
  Report Type: 
  Country: None (occurrence: None)
  Receive Date: 20081217
  Receipt Date: 20080422
  Transmission Date: 20090506
  Serious: No
  Sender: FDA-Public Use
  Company Number: US-ASTRAZENECA-2008UW08148

PATIENT
  Sex: Male

DRUGS (6)
  1. CRESTOR [Suspect]
     Indication: BLOOD CHOLESTEROL INCREASED
     Route: 048
     Dates: start: 20020101
  2. METFORMIN HCL [Concomitant]
  3. AVAPRO [Concomitant]
  4. PROTONIX [Concomitant]
  5. PROSCAR [Concomitant]
  6. ASPIRIN [Concomitant]

REACTIONS (5)
  - DIARRHOEA [None]
  - DYSGEUSIA [None]
  - GASTRITIS [None]
  - HIGH DENSITY LIPOPROTEIN DECREASED [None]
  - VOMITING [None]
